FAERS Safety Report 19289292 (Version 3)
Quarter: 2021Q3

REPORT INFORMATION
  Report Type: Report from Study
  Country: US (occurrence: US)
  Receive Date: 20210521
  Receipt Date: 20210706
  Transmission Date: 20211014
  Serious: Yes (Hospitalization, Other)
  Sender: FDA-Public Use
  Company Number: US-BAYER-2021-134787

PATIENT
  Age: 67 Year
  Sex: Male

DRUGS (2)
  1. NEXAVAR [Suspect]
     Active Substance: SORAFENIB
     Indication: HEPATOCELLULAR CARCINOMA
     Dosage: 200 MG, BID
     Route: 048
     Dates: start: 20210429
  2. NEXAVAR [Suspect]
     Active Substance: SORAFENIB
     Indication: HEPATOCELLULAR CARCINOMA
     Dosage: 200 MG, BID
     Dates: start: 20210603, end: 20210609

REACTIONS (28)
  - Loss of personal independence in daily activities [None]
  - Off label use [Not Recovered/Not Resolved]
  - Nausea [None]
  - Apathy [None]
  - Tumour marker increased [Unknown]
  - Malaise [Unknown]
  - Drug ineffective [Unknown]
  - Exercise tolerance decreased [Not Recovered/Not Resolved]
  - Scrotal swelling [Recovering/Resolving]
  - Asthenia [None]
  - Lethargy [Not Recovered/Not Resolved]
  - Abdominal pain upper [Not Recovered/Not Resolved]
  - Decreased appetite [Unknown]
  - Cardiac disorder [None]
  - Diarrhoea [Not Recovered/Not Resolved]
  - Swelling [Recovering/Resolving]
  - Testicular swelling [Recovering/Resolving]
  - Nausea [Unknown]
  - Fatigue [None]
  - Pruritus [None]
  - Fatigue [Not Recovered/Not Resolved]
  - Bowel movement irregularity [Unknown]
  - Groin infection [Recovering/Resolving]
  - Lymphadenopathy [Recovered/Resolved]
  - Skin laxity [None]
  - Nausea [Not Recovered/Not Resolved]
  - Dry mouth [Not Recovered/Not Resolved]
  - Penile swelling [Recovering/Resolving]
